FAERS Safety Report 7151456-5 (Version None)
Quarter: 2010Q4

REPORT INFORMATION
  Report Type: 
  Country: None (occurrence: None)
  Receive Date: 20101210
  Receipt Date: 20101201
  Transmission Date: 20110411
  Serious: Yes (Other)
  Sender: FDA-Public Use
  Company Number: US-JNJFOC-20101202277

PATIENT
  Age: 67 Year
  Sex: Male
  Weight: 99.79 kg

DRUGS (3)
  1. IMODIUM A-D [Suspect]
     Route: 048
  2. IMODIUM A-D [Suspect]
     Indication: IRRITABLE BOWEL SYNDROME
     Dosage: 2 CAPLETS OR SOMETIMES 3 CAPLETS AS NEEDED
     Route: 048
  3. LABETALOL HCL [Concomitant]
     Indication: HYPERTENSION
     Route: 065

REACTIONS (2)
  - HYPERTENSION [None]
  - INCORRECT DOSE ADMINISTERED [None]
